FAERS Safety Report 14794241 (Version 2)
Quarter: 2018Q2

REPORT INFORMATION
  Report Type: Spontaneous
  Country: SA (occurrence: SA)
  Receive Date: 20180423
  Receipt Date: 20180604
  Transmission Date: 20180711
  Serious: Yes (Other)
  Sender: FDA-Public Use
  Company Number: PHHY2018SA069269

PATIENT
  Age: 45 Year
  Sex: Female

DRUGS (1)
  1. GILENYA [Suspect]
     Active Substance: FINGOLIMOD HYDROCHLORIDE
     Indication: RELAPSING-REMITTING MULTIPLE SCLEROSIS
     Dosage: 1 DF, QD (ONCE DAILY)
     Route: 048

REACTIONS (5)
  - Agitation [Unknown]
  - Seizure [Unknown]
  - Intracranial venous sinus thrombosis [Recovering/Resolving]
  - Vomiting [Unknown]
  - Headache [Unknown]
